FAERS Safety Report 22064176 (Version 1)
Quarter: 2023Q1

REPORT INFORMATION
  Report Type: Spontaneous
  Country: US (occurrence: None)
  Receive Date: 20230306
  Receipt Date: 20230306
  Transmission Date: 20230417
  Serious: Yes (Death, Other)
  Sender: FDA-Public Use
  Company Number: US-MICRO LABS LIMITED-ML2023-01143

PATIENT
  Age: 65 Year
  Sex: Female

DRUGS (2)
  1. VERAPAMIL HYDROCHLORIDE [Suspect]
     Active Substance: VERAPAMIL HYDROCHLORIDE
  2. FAT EMULSION NOS [Suspect]
     Active Substance: EGG PHOSPHOLIPIDS\SAFFLOWER OIL\SOYBEAN OIL

REACTIONS (11)
  - Toxicity to various agents [Fatal]
  - Hepatotoxicity [Fatal]
  - Thrombocytopenia [Fatal]
  - Acute kidney injury [Fatal]
  - Coagulopathy [Fatal]
  - Metabolic acidosis [Fatal]
  - Haemolysis [Fatal]
  - Anion gap [Fatal]
  - Tachycardia [Fatal]
  - Bradycardia [Fatal]
  - Hypotension [Fatal]
